FAERS Safety Report 12718319 (Version 2)
Quarter: 2016Q3

REPORT INFORMATION
  Report Type: Spontaneous
  Country: US (occurrence: US)
  Receive Date: 20160906
  Receipt Date: 20160927
  Transmission Date: 20161109
  Serious: Yes (Other)
  Sender: FDA-Public Use
  Company Number: PHHY2016US120773

PATIENT
  Age: 34 Year
  Sex: Female

DRUGS (1)
  1. COSYNTROPINE [Suspect]
     Active Substance: COSYNTROPIN
     Indication: CUSHING^S SYNDROME
     Route: 065

REACTIONS (1)
  - Blood corticotrophin decreased [Unknown]
